FAERS Safety Report 12099906 (Version 1)
Quarter: 2016Q1

REPORT INFORMATION
  Report Type: Spontaneous
  Country: US (occurrence: None)
  Receive Date: 20160219
  Receipt Date: 20160219
  Transmission Date: 20160526
  Serious: Yes (Hospitalization)
  Sender: FDA-Public Use
  Company Number: None

PATIENT
  Age: 52 Year
  Sex: Male

DRUGS (7)
  1. SEROQUEL [Suspect]
     Active Substance: QUETIAPINE FUMARATE
     Indication: PRODUCT USED FOR UNKNOWN INDICATION
     Dosage: HALF A PILL ONCE EVERY 3 DAYS TAKEN BY MOUTH
     Route: 048
     Dates: end: 20140129
  2. METHYLATION COMPLETE [Concomitant]
  3. HCG [Concomitant]
     Active Substance: GONADOTROPHIN, CHORIONIC
  4. DIAZEPAM. [Concomitant]
     Active Substance: DIAZEPAM
  5. TESTOSTERONE. [Concomitant]
     Active Substance: TESTOSTERONE
  6. PROMETHAZINE [Concomitant]
     Active Substance: PROMETHAZINE\PROMETHAZINE HYDROCHLORIDE
  7. LEUCOVORIN. [Concomitant]
     Active Substance: LEUCOVORIN

REACTIONS (5)
  - Tremor [None]
  - Feeling abnormal [None]
  - Wrong patient received medication [None]
  - Drooling [None]
  - Self-medication [None]

NARRATIVE: CASE EVENT DATE: 20140129
